FAERS Safety Report 7493880-7 (Version None)
Quarter: 2011Q2

REPORT INFORMATION
  Report Type: 
  Country: None (occurrence: None)
  Receive Date: 20110520
  Receipt Date: 20110517
  Transmission Date: 20111010
  Serious: Yes (Life-Threatening, Hospitalization)
  Sender: FDA-Public Use
  Company Number: FR-ROCHE-760935

PATIENT
  Sex: Female
  Weight: 41 kg

DRUGS (21)
  1. TOCILIZUMAB [Suspect]
     Route: 042
     Dates: start: 20100531
  2. TOCILIZUMAB [Suspect]
     Route: 042
     Dates: start: 20100726
  3. KESTIN [Concomitant]
     Route: 048
  4. ARCOXIA [Concomitant]
     Route: 048
  5. TOCILIZUMAB [Suspect]
     Route: 042
     Dates: start: 20101210
  6. ANTALGIC [Concomitant]
     Dosage: 5 MG EQUIVALENT PREDNISONE
     Dates: start: 20100531
  7. FOLIC ACID [Concomitant]
     Dosage: 5 MG EQIEVALENT PREDNISONE.
     Dates: start: 20100726
  8. BONIVA [Concomitant]
     Indication: OSTEOPOROSIS
     Dates: start: 20100726
  9. LAMALINE [Concomitant]
     Indication: RHEUMATOID ARTHRITIS
     Route: 048
  10. TOCILIZUMAB [Suspect]
     Indication: RHEUMATOID ARTHRITIS
     Dosage: TOTAL MONTHLY DOSE: 320 MG
     Route: 042
     Dates: start: 20100503
  11. ROPINIROLE HYDROCHLORIDE [Concomitant]
     Dates: start: 20100726
  12. KESTIN [Concomitant]
     Dates: start: 20100726
  13. LEFLUNOMIDE [Concomitant]
     Dates: start: 20100503
  14. ROPINIROLE HYDROCHLORIDE [Concomitant]
  15. NEXIUM [Concomitant]
     Indication: DYSPHAGIA
     Route: 048
     Dates: start: 20100726
  16. TOCILIZUMAB [Suspect]
     Route: 042
     Dates: start: 20100628
  17. FIXICAL [Concomitant]
     Indication: RHEUMATOID ARTHRITIS
     Route: 048
     Dates: start: 20100726
  18. ARCOXIA [Concomitant]
     Indication: RHEUMATOID ARTHRITIS
     Route: 048
  19. METHOTREXATE [Concomitant]
     Indication: RHEUMATOID ARTHRITIS
     Route: 048
     Dates: start: 20050601
  20. PREDNISONE [Concomitant]
     Indication: RHEUMATOID ARTHRITIS
     Route: 048
  21. ESCITALOPRAM [Concomitant]
     Indication: DEPRESSION
     Route: 048

REACTIONS (1)
  - SUBDURAL HAEMATOMA [None]
